FAERS Safety Report 6808124-6 (Version None)
Quarter: 2010Q2

REPORT INFORMATION
  Report Type: 
  Country: None (occurrence: None)
  Receive Date: 20100629
  Receipt Date: 20090517
  Transmission Date: 20101027
  Serious: No
  Sender: FDA-Public Use
  Company Number: US-PFIZER INC-2009184495

PATIENT
  Sex: Male
  Weight: 81.6 kg

DRUGS (4)
  1. XANAX [Suspect]
     Indication: SLEEP DISORDER
     Dosage: UNK
  2. XANAX [Suspect]
     Indication: PANIC ATTACK
  3. XANAX [Suspect]
     Indication: ANXIETY
  4. DESVENLAFAXINE [Concomitant]
     Dosage: UNK

REACTIONS (3)
  - ABNORMAL BEHAVIOUR [None]
  - DISTURBANCE IN ATTENTION [None]
  - FATIGUE [None]
